FAERS Safety Report 5357298-5 (Version None)
Quarter: 2007Q2

REPORT INFORMATION
  Report Type: 
  Country: None (occurrence: None)
  Receive Date: 20070612
  Receipt Date: 20070604
  Transmission Date: 20071010
  Serious: Yes (Hospitalization, Other)
  Sender: FDA-Public Use
  Company Number: 200703AGG00612

PATIENT
  Age: 76 Year
  Sex: Female

DRUGS (3)
  1. AGGRASTAT [Suspect]
     Indication: ACUTE MYOCARDIAL INFARCTION
     Dosage: (INTRAVENOUS (NOT OTHERWISE SPECIFIED))
     Route: 042
     Dates: start: 20070320, end: 20070321
  2. HEPARIN [Concomitant]
  3. ASPIRIN [Concomitant]

REACTIONS (14)
  - CATHETER RELATED INFECTION [None]
  - CLOSTRIDIUM DIFFICILE COLITIS [None]
  - HAEMOGLOBIN DECREASED [None]
  - NO THERAPEUTIC RESPONSE [None]
  - POSTRENAL FAILURE [None]
  - PSEUDOMONAS INFECTION [None]
  - RESPIRATORY FAILURE [None]
  - RESPIRATORY TRACT INFECTION [None]
  - RETROPERITONEAL HAEMATOMA [None]
  - RETROPERITONEAL HAEMORRHAGE [None]
  - SHOCK HAEMORRHAGIC [None]
  - STAPHYLOCOCCAL INFECTION [None]
  - TREATMENT FAILURE [None]
  - URETERIC OBSTRUCTION [None]
